FAERS Safety Report 20487830 (Version 2)
Quarter: 2022Q1

REPORT INFORMATION
  Report Type: Spontaneous
  Country: EG (occurrence: EG)
  Receive Date: 20220218
  Receipt Date: 20220301
  Transmission Date: 20220424
  Serious: Yes (Hospitalization, Other)
  Sender: FDA-Public Use
  Company Number: EG-NOVOPROD-890370

PATIENT
  Age: 687 Month
  Sex: Female

DRUGS (4)
  1. GLUCOPHAGE [Concomitant]
     Active Substance: METFORMIN HYDROCHLORIDE
     Indication: Diabetes mellitus
     Dosage: ONCE DAILY
     Route: 048
     Dates: start: 2009
  2. EASY DIGEST [Concomitant]
     Indication: Gastric disorder
     Dosage: ONCE DAILY AFTER DINNER
     Route: 048
     Dates: start: 2019
  3. ACTRAPID [Suspect]
     Active Substance: INSULIN HUMAN
     Indication: Diabetes mellitus
     Dosage: 12IU PER EACH MEAL
     Route: 058
  4. ARCALION FORTE [Concomitant]
     Indication: Memory impairment
     Dosage: ONCE DAILY
     Route: 048

REACTIONS (3)
  - Thyroidectomy [Not Recovered/Not Resolved]
  - Blood glucose increased [Not Recovered/Not Resolved]
  - Blood ketone body increased [Not Recovered/Not Resolved]

NARRATIVE: CASE EVENT DATE: 20090101
